FAERS Safety Report 18640844 (Version 1)
Quarter: 2020Q4

REPORT INFORMATION
  Report Type: Other
  Country: US (occurrence: US)
  Receive Date: 20201221
  Receipt Date: 20201221
  Transmission Date: 20210114
  Serious: Yes (Other)
  Sender: FDA-Public Use
  Company Number: US-ROCHE-2729195

PATIENT
  Age: 65 Year
  Sex: Male
  Weight: 72.64 kg

DRUGS (9)
  1. ACTEMRA [Suspect]
     Active Substance: TOCILIZUMAB
     Dosage: ONGOING NO
     Route: 058
     Dates: start: 20190701
  2. ACTEMRA [Suspect]
     Active Substance: TOCILIZUMAB
     Indication: GIANT CELL ARTERITIS
     Dosage: SELF-ADMINISTER ;ONGOING: YES
     Route: 058
     Dates: start: 20200909
  3. PREDNISONE. [Suspect]
     Active Substance: PREDNISONE
     Dosage: TREATMENT ;ONGOING: NO
     Route: 065
     Dates: start: 20200605, end: 202006
  4. PREDNISONE. [Suspect]
     Active Substance: PREDNISONE
     Dosage: 40 WEEK WEAN FROM 20 MG ;ONGOING: YES
     Route: 065
     Dates: start: 20200613
  5. ALPHAGAN P [Concomitant]
     Active Substance: BRIMONIDINE TARTRATE
     Dosage: BOTH EYES ;ONGOING: YES
     Route: 047
     Dates: start: 2020
  6. PREDNISONE. [Suspect]
     Active Substance: PREDNISONE
     Indication: GIANT CELL ARTERITIS
     Dosage: 40 WEEK WEAN FROM 20 MG ;ONGOING: NO
     Route: 065
     Dates: start: 201907, end: 20200522
  7. ACTEMRA [Suspect]
     Active Substance: TOCILIZUMAB
  8. MIRALAX [Concomitant]
     Active Substance: POLYETHYLENE GLYCOL 3350
     Indication: CONSTIPATION
  9. ACTEMRA [Suspect]
     Active Substance: TOCILIZUMAB

REACTIONS (8)
  - Herpes zoster [Not Recovered/Not Resolved]
  - Weight increased [Not Recovered/Not Resolved]
  - Anaemia [Recovered/Resolved]
  - Polyp [Recovered/Resolved]
  - Therapeutic product ineffective [Unknown]
  - Oedema peripheral [Unknown]
  - Blindness unilateral [Recovered/Resolved]
  - Oedema [Not Recovered/Not Resolved]

NARRATIVE: CASE EVENT DATE: 201907
